FAERS Safety Report 17499696 (Version 1)
Quarter: 2020Q1

REPORT INFORMATION
  Report Type: Spontaneous
  Country: US (occurrence: US)
  Receive Date: 20200304
  Receipt Date: 20200304
  Transmission Date: 20200409
  Serious: Yes (Life-Threatening, Hospitalization, Disabling, Other)
  Sender: FDA-Public Use
  Company Number: US-009507513-2003USA000475

PATIENT
  Sex: Male

DRUGS (2)
  1. ZERBAXA [Suspect]
     Active Substance: CEFTOLOZANE SULFATE\TAZOBACTAM SODIUM
     Indication: BACTERIAL DISEASE CARRIER
     Dosage: 750 MILLIGRAM, EVERY 8 HOURS
     Route: 042
     Dates: start: 202002
  2. ZERBAXA [Suspect]
     Active Substance: CEFTOLOZANE SULFATE\TAZOBACTAM SODIUM
     Indication: OSTEOMYELITIS
     Dosage: 1.5 GRAM, EVERY 8 HOURS
     Route: 042
     Dates: start: 20200224, end: 202002

REACTIONS (3)
  - Renal impairment [Not Recovered/Not Resolved]
  - Pneumonia [Not Recovered/Not Resolved]
  - Product use in unapproved indication [Unknown]

NARRATIVE: CASE EVENT DATE: 202002
